FAERS Safety Report 11088295 (Version 1)
Quarter: 2015Q2

REPORT INFORMATION
  Report Type: Spontaneous
  Country: JP (occurrence: None)
  Receive Date: 20150430
  Receipt Date: 20150430
  Transmission Date: 20150821
  Serious: Yes (Other)
  Sender: FDA-Public Use
  Company Number: 2015SGN00640

PATIENT
  Age: 37 Year
  Sex: Female
  Weight: 39.4 kg

DRUGS (3)
  1. BAKTAR (SULFAMETHOXAZOLE, TRIMETHOPRIM) [Concomitant]
  2. ACICLOVIR [Concomitant]
     Active Substance: ACYCLOVIR
  3. ADCETRIS [Suspect]
     Active Substance: BRENTUXIMAB VEDOTIN
     Route: 041
     Dates: start: 20140428, end: 20140519

REACTIONS (1)
  - Lymphocyte count decreased [None]

NARRATIVE: CASE EVENT DATE: 20140430
